FAERS Safety Report 5660933-5 (Version None)
Quarter: 2008Q1

REPORT INFORMATION
  Report Type: 
  Country: None (occurrence: None)
  Receive Date: 20080311
  Receipt Date: 20080226
  Transmission Date: 20080703
  Serious: Yes (Other)
  Sender: FDA-Public Use
  Company Number: US-PFIZER INC-2008001458

PATIENT
  Sex: Female
  Weight: 70.454 kg

DRUGS (20)
  1. CHANTIX [Suspect]
     Indication: SMOKING CESSATION THERAPY
     Route: 048
     Dates: start: 20060901, end: 20061101
  2. XANAX [Suspect]
     Indication: ANXIETY
  3. VASOTEC [Concomitant]
  4. ZOCOR [Concomitant]
  5. SPIRIVA [Concomitant]
  6. ADVAIR DISKUS 100/50 [Concomitant]
  7. XOPENEX [Concomitant]
  8. DIURETICS [Concomitant]
  9. NEXIUM [Concomitant]
  10. PAXIL [Concomitant]
  11. VITAMIN CAP [Concomitant]
  12. CALCIUM [Concomitant]
  13. ADVAIR DISKUS 100/50 [Concomitant]
     Dosage: TEXT:500/50
  14. CYMBALTA [Concomitant]
  15. PROTONIX [Concomitant]
  16. ASTELIN [Concomitant]
     Route: 045
  17. MUCINEX [Concomitant]
  18. CELEBREX [Concomitant]
  19. ALBUTEROL [Concomitant]
  20. CLARITIN-D [Concomitant]

REACTIONS (28)
  - ABDOMINAL PAIN UPPER [None]
  - ABNORMAL DREAMS [None]
  - ANXIETY [None]
  - ARTHRITIS [None]
  - BALANCE DISORDER [None]
  - BRONCHITIS CHRONIC [None]
  - CHRONIC OBSTRUCTIVE PULMONARY DISEASE [None]
  - CLUMSINESS [None]
  - DEPRESSION [None]
  - DYSURIA [None]
  - EPIGASTRIC DISCOMFORT [None]
  - FATIGUE [None]
  - GAIT DISTURBANCE [None]
  - HAEMOPTYSIS [None]
  - HAEMORRHAGE [None]
  - HYPERSENSITIVITY [None]
  - HYPOAESTHESIA [None]
  - INCREASED UPPER AIRWAY SECRETION [None]
  - INJECTION SITE EXTRAVASATION [None]
  - INSOMNIA [None]
  - MALAISE [None]
  - MENOPAUSAL SYMPTOMS [None]
  - ORAL CANDIDIASIS [None]
  - PRODUCTIVE COUGH [None]
  - PRURITUS [None]
  - RHINITIS [None]
  - SINUSITIS [None]
  - SUICIDAL IDEATION [None]
